FAERS Safety Report 9426415 (Version 1)
Quarter: 2013Q3

REPORT INFORMATION
  Report Type: Spontaneous
  Country: US (occurrence: US)
  Receive Date: 20130730
  Receipt Date: 20130730
  Transmission Date: 20140515
  Serious: Yes (Hospitalization)
  Sender: FDA-Public Use
  Company Number: US-BAYER-2013-091761

PATIENT
  Age: 49 Year
  Sex: Female
  Weight: 72.11 kg

DRUGS (4)
  1. YAZ [Suspect]
  2. FLAGYL [Concomitant]
     Route: 042
  3. VANCOMYCIN [Concomitant]
     Route: 048
  4. NEUPOGEN [Concomitant]

REACTIONS (1)
  - Intracranial venous sinus thrombosis [None]
